FAERS Safety Report 7348331-X (Version None)
Quarter: 2011Q1

REPORT INFORMATION
  Report Type: 
  Country: None (occurrence: None)
  Receive Date: 20110311
  Receipt Date: 20110307
  Transmission Date: 20110831
  Serious: Yes (Death, Life-Threatening, Other)
  Sender: FDA-Public Use
  Company Number: GB-ROXANE LABORATORIES, INC.-2011-RO-00275RO

PATIENT
  Sex: Female

DRUGS (5)
  1. SEVOFLURANE [Suspect]
     Indication: ANAESTHESIA
  2. VECURONIUM BROMIDE [Suspect]
     Indication: NEUROMUSCULAR BLOCKADE
     Dosage: 10 MG
  3. REMIFENTANIL [Suspect]
     Indication: ANAESTHESIA
     Route: 042
  4. PROPOFOL [Suspect]
     Indication: ANAESTHESIA
     Dosage: 90 MG
     Route: 042
  5. DEXAMETHASONE [Suspect]
     Dosage: 16 MG

REACTIONS (8)
  - HYPERGLYCAEMIC HYPEROSMOLAR NONKETOTIC SYNDROME [None]
  - BRADYCARDIA [None]
  - DEATH [None]
  - DIABETIC KETOACIDOSIS [None]
  - HYPERTENSION [None]
  - RENAL FAILURE ACUTE [None]
  - BRAIN OEDEMA [None]
  - DIABETES INSIPIDUS [None]
